FAERS Safety Report 6082475-8 (Version None)
Quarter: 2009Q1

REPORT INFORMATION
  Report Type: 
  Country: None (occurrence: None)
  Receive Date: 20090126
  Receipt Date: 20080218
  Transmission Date: 20090719
  Serious: Yes (Life-Threatening)
  Sender: FDA-Public Use
  Company Number: 271199

PATIENT
  Age: 64 Year
  Sex: Female

DRUGS (3)
  1. LEVEMIR [Suspect]
     Indication: TYPE 1 DIABETES MELLITUS
     Dosage: 50 IU, BID, SUBCUTANEOUS
     Route: 058
     Dates: start: 20080101
  2. GLEEVAC (IMATINIB MESILATE) [Concomitant]
  3. LANTUS [Concomitant]

REACTIONS (2)
  - ACCIDENTAL OVERDOSE [None]
  - HYPOGLYCAEMIC UNCONSCIOUSNESS [None]
